FAERS Safety Report 6736781-1 (Version None)
Quarter: 2010Q2

REPORT INFORMATION
  Report Type: 
  Country: None (occurrence: None)
  Receive Date: 20100521
  Receipt Date: 20100510
  Transmission Date: 20101027
  Serious: Yes (Other)
  Sender: FDA-Public Use
  Company Number: ES-ELI_LILLY_AND_COMPANY-ES201005002358

PATIENT
  Sex: Female
  Weight: 95 kg

DRUGS (9)
  1. FORTEO [Suspect]
     Indication: OSTEOPOROSIS
     Dosage: 20 UG, DAILY (1/D)
     Route: 058
     Dates: start: 20091001
  2. NOLOTIL [Concomitant]
     Indication: PAIN
     Dosage: UNK, UNKNOWN
     Route: 048
  3. AMILORIDE HCL AND HYDROCHLOROTHIAZIDE [Concomitant]
     Indication: FLUID RETENTION
     Dosage: 50 MG, DAILY (1/D)
     Route: 048
     Dates: start: 20040101
  4. DOXIUM [Concomitant]
     Dosage: 500 MG, DAILY (1/D)
     Route: 048
     Dates: start: 20040101
  5. PUNTUALEX [Concomitant]
     Indication: PAIN
     Dosage: UNK(37, 5 - 325 MG), AS NEEDED
     Route: 048
     Dates: start: 20040101
  6. DOLTARD [Concomitant]
     Indication: PAIN
     Dosage: 100 MG, AS NEEDED
     Route: 048
     Dates: start: 20040101
  7. ALAPRIL [Concomitant]
     Indication: INSOMNIA
     Dosage: 40 MG, DAILY (1/D)
     Route: 048
     Dates: start: 20040101
  8. NATECAL [Concomitant]
     Indication: OSTEOPOROSIS
     Dosage: UNK, DAILY (1/D)
     Route: 048
  9. CALCIUM [Concomitant]
     Dosage: UNK, UNKNOWN
     Route: 065

REACTIONS (1)
  - VAGINAL HAEMORRHAGE [None]
